FAERS Safety Report 7116318-8 (Version None)
Quarter: 2010Q4

REPORT INFORMATION
  Report Type: 
  Country: None (occurrence: None)
  Receive Date: 20101122
  Receipt Date: 20101116
  Transmission Date: 20110411
  Serious: Yes (Other)
  Sender: FDA-Public Use
  Company Number: A0875654A

PATIENT
  Sex: Male
  Weight: 3.7 kg

DRUGS (3)
  1. EPZICOM [Suspect]
     Indication: ANTIRETROVIRAL THERAPY
     Dosage: 600MGD PER DAY
  2. NORVIR [Suspect]
     Indication: ANTIRETROVIRAL THERAPY
     Dosage: 100MGD PER DAY
     Dates: start: 20100216
  3. REYATAZ [Suspect]
     Indication: ANTIRETROVIRAL THERAPY
     Dosage: 300MGD PER DAY

REACTIONS (14)
  - ADACTYLY [None]
  - CONGENITAL ANOMALY [None]
  - DRUG EXPOSURE DURING PREGNANCY [None]
  - EYE DISCHARGE [None]
  - FEEDING DISORDER NEONATAL [None]
  - HIGH ARCHED PALATE [None]
  - HYPERBILIRUBINAEMIA [None]
  - ILL-DEFINED DISORDER [None]
  - PILONIDAL CYST CONGENITAL [None]
  - PRENATAL SCREENING TEST ABNORMAL [None]
  - RHINORRHOEA [None]
  - SKELETON DYSPLASIA [None]
  - TACHYPNOEA [None]
  - VOMITING [None]
